FAERS Safety Report 9909517 (Version 2)
Quarter: 2014Q1

REPORT INFORMATION
  Report Type: Spontaneous
  Country: US (occurrence: US)
  Receive Date: 20140219
  Receipt Date: 20140219
  Transmission Date: 20141002
  Serious: No
  Sender: FDA-Public Use
  Company Number: US-GILEAD-2012-0056397

PATIENT
  Sex: Female

DRUGS (3)
  1. LETAIRIS [Suspect]
     Indication: PRODUCT USED FOR UNKNOWN INDICATION
     Dosage: 10 MG, UNK
     Route: 048
     Dates: start: 20120516
  2. LETAIRIS [Suspect]
     Dosage: 2.5 MG, UNK
     Route: 048
  3. LETAIRIS [Suspect]
     Dosage: 5 MG, UNK
     Route: 048

REACTIONS (3)
  - Muscle spasms [Unknown]
  - Back pain [Unknown]
  - Local swelling [Unknown]
